FAERS Safety Report 4617606-7 (Version None)
Quarter: 2005Q1

REPORT INFORMATION
  Report Type: 
  Country: None (occurrence: None)
  Receive Date: 20050324
  Receipt Date: 20050321
  Transmission Date: 20050727
  Serious: Yes (Hospitalization)
  Sender: FDA-Public Use
  Company Number: US-MERCK-0503USA03482

PATIENT

DRUGS (7)
  1. COGENTIN [Suspect]
     Route: 048
  2. WELLBUTRIN SR [Suspect]
     Route: 065
  3. LITHIUM CARBONATE [Suspect]
     Route: 048
  4. KLONOPIN [Suspect]
     Route: 065
  5. TRAZODONE HYDROCHLORIDE [Suspect]
     Route: 065
  6. SEROQUEL [Suspect]
     Route: 065
  7. PROLIXIN [Suspect]
     Route: 065

REACTIONS (2)
  - ADVERSE EVENT [None]
  - DRUG INTERACTION [None]
